FAERS Safety Report 4302742-5 (Version None)
Quarter: 2004Q1

REPORT INFORMATION
  Report Type: 
  Country: None (occurrence: None)
  Receive Date: 20040224
  Receipt Date: 20040212
  Transmission Date: 20041129
  Serious: Yes (Disabling, Congenital Anomaly)
  Sender: FDA-Public Use
  Company Number: PHRM2004FR00831

PATIENT
  Age: 1 Day
  Sex: Male

DRUGS (5)
  1. GYNERGENE [Suspect]
     Route: 064
  2. OPTALIDON (NCH) [Suspect]
     Route: 064
  3. NOCTRAN [Suspect]
     Route: 064
  4. SEGLOR [Suspect]
     Route: 064
  5. PROZAC [Suspect]
     Route: 064

REACTIONS (3)
  - CLEFT LIP [None]
  - MATERNAL DRUGS AFFECTING FOETUS [None]
  - PREMATURE BABY [None]
